FAERS Safety Report 15699228 (Version 1)
Quarter: 2018Q4

REPORT INFORMATION
  Report Type: Report from Study
  Country: CA (occurrence: CA)
  Receive Date: 20181207
  Receipt Date: 20181207
  Transmission Date: 20190205
  Serious: Yes (Other)
  Sender: FDA-Public Use
  Company Number: CA-TEVA-2018-CA-983604

PATIENT
  Sex: Female

DRUGS (3)
  1. MULTIVITAMIN [Concomitant]
     Active Substance: VITAMINS
  2. COPAXONE [Suspect]
     Active Substance: GLATIRAMER ACETATE
     Indication: MULTIPLE SCLEROSIS
     Dosage: COPAXONE 40MG/ML THRICE A WEEK
     Route: 058
     Dates: start: 20181018, end: 20181126
  3. VITAMIN D [Concomitant]
     Active Substance: CHOLECALCIFEROL

REACTIONS (10)
  - Injection site pain [Not Recovered/Not Resolved]
  - Injection site bruising [Unknown]
  - Hypoaesthesia oral [Unknown]
  - Swollen tongue [Unknown]
  - Drug intolerance [Unknown]
  - Injection site rash [Not Recovered/Not Resolved]
  - Rash [Not Recovered/Not Resolved]
  - Condition aggravated [Unknown]
  - Injection site mass [Not Recovered/Not Resolved]
  - Hypersensitivity [Unknown]
